FAERS Safety Report 11857720 (Version 1)
Quarter: 2015Q4

REPORT INFORMATION
  Report Type: Spontaneous
  Country: US (occurrence: None)
  Receive Date: 20151221
  Receipt Date: 20151221
  Transmission Date: 20160305
  Serious: No
  Sender: FDA-Public Use
  Company Number: None

PATIENT
  Age: 13 Year
  Sex: Male

DRUGS (1)
  1. HUMATROPE [Suspect]
     Active Substance: SOMATROPIN
     Indication: DWARFISM
     Dosage: 1.9MG?DAILY?SUB-Q
     Route: 058

REACTIONS (2)
  - Sensory disturbance [None]
  - Injection site paraesthesia [None]

NARRATIVE: CASE EVENT DATE: 20151218
